FAERS Safety Report 4374013-2 (Version None)
Quarter: 2004Q2

REPORT INFORMATION
  Report Type: 
  Country: None (occurrence: None)
  Receive Date: 20040603
  Receipt Date: 20040511
  Transmission Date: 20050107
  Serious: Yes (Death, Other)
  Sender: FDA-Public Use
  Company Number: EWC040539215

PATIENT
  Age: 49 Year
  Sex: Male
  Weight: 73 kg

DRUGS (5)
  1. HUMALOG [Suspect]
     Indication: DIABETES MELLITUS
     Dosage: 7 U/3 DAY
     Dates: start: 20030505
  2. ALPRESS [Concomitant]
  3. VIRAFERONPEG [Concomitant]
  4. TENSTATEN [Concomitant]
  5. VIRLIX [Concomitant]

REACTIONS (7)
  - CARDIO-RESPIRATORY ARREST [None]
  - HYPOGLYCAEMIA [None]
  - HYPOTONIA [None]
  - MALAISE [None]
  - MUSCLE SPASMS [None]
  - MYDRIASIS [None]
  - RESPIRATORY ARREST [None]
